FAERS Safety Report 15203871 (Version 1)
Quarter: 2018Q3

REPORT INFORMATION
  Report Type: Spontaneous
  Country: GB (occurrence: GB)
  Receive Date: 20180726
  Receipt Date: 20180726
  Transmission Date: 20181010
  Serious: Yes (Life-Threatening)
  Sender: FDA-Public Use
  Company Number: GB-FRESENIUS KABI-FK201808216

PATIENT
  Age: 36 Year
  Sex: Female

DRUGS (2)
  1. OXYTOCIN INJECTION (MANUFACTURER UNKNOWN) [Suspect]
     Active Substance: OXYTOCIN
     Indication: LABOUR INDUCTION
     Dosage: 10 IU IN 0.9 PERCENT SALINE 500 ML, DOSE ESCALATED PER PROTOCOL
     Route: 065
  2. SODIUM CHLORIDE. [Concomitant]
     Active Substance: SODIUM CHLORIDE

REACTIONS (2)
  - Brain oedema [Recovered/Resolved]
  - Hyponatraemic seizure [Recovered/Resolved]
